FAERS Safety Report 14387704 (Version 1)
Quarter: 2018Q1

REPORT INFORMATION
  Report Type: Spontaneous
  Country: US (occurrence: US)
  Receive Date: 20180115
  Receipt Date: 20180115
  Transmission Date: 20180509
  Serious: Yes (Other)
  Sender: FDA-Public Use
  Company Number: US-SA-2017SA183640

PATIENT
  Age: 55 Year
  Sex: Female
  Weight: 125 kg

DRUGS (3)
  1. TAXOTERE [Suspect]
     Active Substance: DOCETAXEL
     Indication: BREAST CANCER FEMALE
     Route: 051
     Dates: start: 20080711, end: 20080711
  2. TAXOTERE [Suspect]
     Active Substance: DOCETAXEL
     Indication: BREAST CANCER FEMALE
     Route: 051
     Dates: start: 20081031, end: 20081031
  3. CYCLOPHOSPHAMIDE. [Concomitant]
     Active Substance: CYCLOPHOSPHAMIDE
     Route: 065

REACTIONS (6)
  - Psychological trauma [Unknown]
  - Alopecia [Not Recovered/Not Resolved]
  - Impaired quality of life [Unknown]
  - Anxiety [Unknown]
  - Pain [Unknown]
  - Emotional distress [Unknown]

NARRATIVE: CASE EVENT DATE: 2008
